FAERS Safety Report 10524428 (Version 1)
Quarter: 2014Q4

REPORT INFORMATION
  Report Type: Spontaneous
  Country: US (occurrence: US)
  Receive Date: 20141017
  Receipt Date: 20141017
  Transmission Date: 20150528
  Serious: No
  Sender: FDA-Public Use
  Company Number: US-009507513-1410USA004713

PATIENT
  Sex: Male

DRUGS (1)
  1. AFRIN [Suspect]
     Active Substance: OXYMETAZOLINE
     Indication: PRODUCT USED FOR UNKNOWN INDICATION
     Dosage: UNK, UNKNOWN
     Route: 045
     Dates: start: 20141005

REACTIONS (4)
  - Product odour abnormal [Unknown]
  - Vomiting [Unknown]
  - Expired product administered [Unknown]
  - Nausea [Unknown]

NARRATIVE: CASE EVENT DATE: 20141005
